FAERS Safety Report 10204985 (Version 2)
Quarter: 2014Q3

REPORT INFORMATION
  Report Type: Spontaneous
  Country: US (occurrence: US)
  Receive Date: 20140529
  Receipt Date: 20140804
  Transmission Date: 20150326
  Serious: Yes (Hospitalization)
  Sender: FDA-Public Use
  Company Number: CHPA2014US007200

PATIENT
  Age: 71 Year
  Sex: Female

DRUGS (3)
  1. EXCEDRIN [Suspect]
     Active Substance: ACETAMINOPHEN\ASPIRIN\CAFFEINE
     Dosage: UNK
     Route: 048
  2. ARIXTRA [Suspect]
     Active Substance: FONDAPARINUX SODIUM
     Indication: DEEP VEIN THROMBOSIS
  3. MOTRIN [Suspect]
     Active Substance: IBUPROFEN
     Route: 048

REACTIONS (3)
  - Mallory-Weiss syndrome [Recovered/Resolved]
  - Haematemesis [Unknown]
  - Gastrointestinal haemorrhage [Unknown]
